FAERS Safety Report 20719441 (Version 1)
Quarter: 2022Q2

REPORT INFORMATION
  Report Type: Spontaneous
  Country: US (occurrence: US)
  Receive Date: 20220418
  Receipt Date: 20220418
  Transmission Date: 20220721
  Serious: No
  Sender: FDA-Public Use
  Company Number: US-GLENMARK PHARMACEUTICALS-2022GMK070784

PATIENT

DRUGS (1)
  1. IMIQUIMOD [Suspect]
     Active Substance: IMIQUIMOD
     Indication: Postoperative care
     Dosage: UNK
     Route: 061

REACTIONS (4)
  - Product use in unapproved indication [Unknown]
  - Dysuria [Unknown]
  - Burning sensation [Unknown]
  - Erythema [Unknown]
